FAERS Safety Report 7577407 (Version 20)
Quarter: 2013Q4

REPORT INFORMATION
  Report Type: Report from Study
  Country: CA (occurrence: CA)
  Receive Date: 20100909
  Receipt Date: 20131022
  Transmission Date: 20140711
  Serious: Yes (Hospitalization, Other)
  Sender: FDA-Public Use
  Company Number: PHHY2010CA58351

PATIENT
  Sex: Female

DRUGS (8)
  1. SANDOSTATIN LAR [Suspect]
     Indication: DIARRHOEA
     Dosage: 20 MG ONCE IN MONTH
     Route: 030
     Dates: start: 20100612
  2. SANDOSTATIN LAR [Suspect]
     Dosage: 20 MG EVERY 4 WEEKS
     Route: 030
     Dates: end: 20101026
  3. SANDOSTATIN LAR [Suspect]
     Dosage: 20 MG, ONCE A MONTH
     Route: 030
  4. SANDOSTATIN LAR [Suspect]
     Dosage: 20 MG, QMO
     Route: 030
  5. SANDOSTATIN LAR [Suspect]
     Dosage: 30 MG, ONCE A MONTH
     Route: 030
  6. SANDOSTATIN LAR [Suspect]
     Dosage: 20 MG, ONCE A MONTH
     Route: 030
     Dates: start: 20100713
  7. ANTIBIOTICS [Concomitant]
     Dosage: UNK UKN, UNK
     Route: 042
  8. CLONIDINE [Concomitant]
     Dosage: 0.2 MG, QD

REACTIONS (22)
  - Enterococcal infection [Unknown]
  - Thrombosis [Unknown]
  - Staphylococcal infection [Unknown]
  - Sepsis [Unknown]
  - Renal failure [Unknown]
  - Subclavian vein thrombosis [Unknown]
  - Blood creatinine increased [Unknown]
  - Diarrhoea [Unknown]
  - Hyperhidrosis [Unknown]
  - Malaise [Unknown]
  - Urine output decreased [Unknown]
  - Pain in extremity [Unknown]
  - Hot flush [Unknown]
  - Menstrual disorder [Unknown]
  - Blood pressure decreased [Unknown]
  - Nasopharyngitis [Unknown]
  - Lethargy [Unknown]
  - Device related infection [Unknown]
  - Blood pressure increased [Unknown]
  - Dehydration [Unknown]
  - Anxiety [Unknown]
  - Rash [Unknown]
